FAERS Safety Report 6597192-5 (Version None)
Quarter: 2010Q1

REPORT INFORMATION
  Report Type: 
  Country: None (occurrence: None)
  Receive Date: 20100223
  Receipt Date: 20100215
  Transmission Date: 20100710
  Serious: Yes (Other)
  Sender: FDA-Public Use
  Company Number: JP-PFIZER INC-2010022970

PATIENT

DRUGS (3)
  1. CARDENALIN [Suspect]
     Dosage: UNK
     Route: 048
  2. WARFARIN POTASSIUM [Concomitant]
     Dosage: UNK
     Route: 048
  3. EPADEL [Concomitant]
     Dosage: UNK

REACTIONS (1)
  - TONGUE NEOPLASM [None]
